FAERS Safety Report 4623455-6 (Version None)
Quarter: 2005Q1

REPORT INFORMATION
  Report Type: 
  Country: None (occurrence: None)
  Receive Date: 20050330
  Receipt Date: 20050317
  Transmission Date: 20050727
  Serious: Yes (Disabling)
  Sender: FDA-Public Use
  Company Number: 2005GB00362

PATIENT
  Age: 70 Year
  Sex: Male

DRUGS (2)
  1. ZOLADEX [Suspect]
     Dates: start: 19951101, end: 20030101
  2. BENDROFLUAZIDE [Concomitant]

REACTIONS (3)
  - CEREBELLAR ATAXIA [None]
  - DEMENTIA [None]
  - DYSPHAGIA [None]
